FAERS Safety Report 10695210 (Version 2)
Quarter: 2015Q2

REPORT INFORMATION
  Report Type: Spontaneous
  Country: IT (occurrence: IT)
  Receive Date: 20150107
  Receipt Date: 20150408
  Transmission Date: 20150821
  Serious: Yes (Other)
  Sender: FDA-Public Use
  Company Number: IT-PFIZER INC-2015004645

PATIENT
  Age: 83 Year
  Sex: Male

DRUGS (4)
  1. CORDARONE [Suspect]
     Active Substance: AMIODARONE HYDROCHLORIDE
     Dosage: 200 MG, DAILY
     Route: 048
     Dates: start: 20140101, end: 20150101
  2. PERINDOPRIL [Concomitant]
     Active Substance: PERINDOPRIL
     Dosage: UNK
  3. ARGININE [Concomitant]
     Active Substance: ARGININE
     Dosage: UNK
  4. INDAPAMIDE. [Concomitant]
     Active Substance: INDAPAMIDE
     Dosage: UNK

REACTIONS (3)
  - Sinus bradycardia [Recovering/Resolving]
  - Presyncope [Recovering/Resolving]
  - Trifascicular block [Recovering/Resolving]

NARRATIVE: CASE EVENT DATE: 20150101
